FAERS Safety Report 5904348-0 (Version None)
Quarter: 2008Q4

REPORT INFORMATION
  Report Type: 
  Country: None (occurrence: None)
  Receive Date: 20081001
  Receipt Date: 20080923
  Transmission Date: 20090506
  Serious: Yes (Hospitalization)
  Sender: FDA-Public Use
  Company Number: PHHY2008BE22474

PATIENT
  Sex: Female

DRUGS (3)
  1. TASIGNA [Suspect]
     Dosage: UNK
     Dates: start: 20080919
  2. GLEEVEC [Suspect]
     Dosage: 200 MG/DAY
     Dates: start: 20031201
  3. DASATINIB [Suspect]
     Dosage: UNK
     Dates: start: 20080401

REACTIONS (1)
  - HYPERBILIRUBINAEMIA [None]
